FAERS Safety Report 6945194-9 (Version None)
Quarter: 2010Q3

REPORT INFORMATION
  Report Type: 
  Country: None (occurrence: None)
  Receive Date: 20100827
  Receipt Date: 20100525
  Transmission Date: 20110219
  Serious: No
  Sender: FDA-Public Use
  Company Number: US-KINGPHARMUSA00001-K201000672

PATIENT
  Sex: Female
  Weight: 48.98 kg

DRUGS (9)
  1. FLECTOR [Suspect]
     Indication: BACK PAIN
     Dosage: 1 PATCH, Q12H
     Route: 061
     Dates: start: 20100101, end: 20100525
  2. FLECTOR [Suspect]
     Dosage: 1 PATCH, QD
     Route: 061
     Dates: start: 20100101, end: 20100101
  3. MACROBID [Suspect]
     Indication: CYSTITIS
     Dosage: UNK
     Dates: end: 20100525
  4. BALACET [Concomitant]
     Indication: PAIN
  5. LYRICA [Concomitant]
     Indication: FIBROMYALGIA
  6. NEXIUM [Concomitant]
     Indication: GASTROOESOPHAGEAL REFLUX DISEASE
  7. XANAX [Concomitant]
     Indication: ANTIDEPRESSANT THERAPY
     Dosage: 1/4 TAB QHS
  8. TRAZODONE HCL [Concomitant]
     Indication: SLEEP DISORDER
     Dosage: UNK
  9. TRIAZOLAM [Concomitant]

REACTIONS (4)
  - CHILLS [None]
  - NAUSEA [None]
  - PYREXIA [None]
  - VOMITING [None]
